FAERS Safety Report 6497265-1 (Version None)
Quarter: 2009Q4

REPORT INFORMATION
  Report Type: 
  Country: None (occurrence: None)
  Receive Date: 20091215
  Receipt Date: 20090731
  Transmission Date: 20100525
  Serious: No
  Sender: FDA-Public Use
  Company Number: A0799873A

PATIENT
  Age: 83 Year
  Sex: Male

DRUGS (4)
  1. AVODART [Suspect]
     Indication: BENIGN PROSTATIC HYPERPLASIA
     Dosage: 1CAP PER DAY
     Route: 048
     Dates: start: 20070317
  2. AMLODIPINE [Concomitant]
  3. SIMVASTATIN [Concomitant]
  4. VITAMINS [Concomitant]

REACTIONS (1)
  - SEMEN DISCOLOURATION [None]
